FAERS Safety Report 10899224 (Version 1)
Quarter: 2015Q1

REPORT INFORMATION
  Report Type: Spontaneous
  Country: US (occurrence: US)
  Receive Date: 20150309
  Receipt Date: 20150309
  Transmission Date: 20150721
  Serious: Yes (Hospitalization, Other)
  Sender: FDA-Public Use
  Company Number: US-BAXTER-2015BAX011375

PATIENT
  Age: 32 Year
  Sex: Male
  Weight: 74.2 kg

DRUGS (5)
  1. FENTANYL. [Suspect]
     Active Substance: FENTANYL
     Indication: INDUCTION OF ANAESTHESIA
     Route: 065
  2. SEVOFLURANE, USP [Suspect]
     Active Substance: SEVOFLURANE
     Indication: MAINTENANCE OF ANAESTHESIA
     Route: 055
  3. MIDAZOLAM [Suspect]
     Active Substance: MIDAZOLAM\MIDAZOLAM HYDROCHLORIDE
     Indication: INDUCTION OF ANAESTHESIA
     Route: 065
  4. NITROUS OXIDE. [Suspect]
     Active Substance: NITROUS OXIDE
     Indication: MAINTENANCE OF ANAESTHESIA
     Route: 065
  5. PROPOFOL. [Suspect]
     Active Substance: PROPOFOL
     Indication: INDUCTION OF ANAESTHESIA
     Route: 065

REACTIONS (4)
  - Cognitive disorder [Not Recovered/Not Resolved]
  - Cerebral ischaemia [Unknown]
  - Procedural complication [Unknown]
  - Delayed recovery from anaesthesia [Recovered/Resolved]
